FAERS Safety Report 16625442 (Version 2)
Quarter: 2019Q3

REPORT INFORMATION
  Report Type: Spontaneous
  Country: US (occurrence: US)
  Receive Date: 20190724
  Receipt Date: 20190802
  Transmission Date: 20191004
  Serious: No
  Sender: FDA-Public Use
  Company Number: US-PFIZER INC-2019313988

PATIENT
  Age: 51 Year
  Sex: Female

DRUGS (1)
  1. BOSULIF [Suspect]
     Active Substance: BOSUTINIB MONOHYDRATE
     Indication: CHRONIC MYELOID LEUKAEMIA (IN REMISSION)
     Dosage: 500 MG, DAILY
     Route: 048
     Dates: start: 201906

REACTIONS (8)
  - Decreased appetite [Unknown]
  - Diarrhoea [Recovering/Resolving]
  - Gingival bleeding [Unknown]
  - Vomiting [Recovering/Resolving]
  - Constipation [Unknown]
  - Arthralgia [Unknown]
  - Weight decreased [Unknown]
  - Product dose omission [Unknown]
